FAERS Safety Report 8820503 (Version 1)
Quarter: 2012Q4

REPORT INFORMATION
  Report Type: 
  Country: US (occurrence: US)
  Receive Date: 20121002
  Receipt Date: 20121002
  Transmission Date: 20130627
  Serious: No
  Sender: FDA-Public Use
  Company Number: US-COVIDIEN/TYCO HEALTHCARE/MALLINCKRODT-T201200721

PATIENT

DRUGS (2)
  1. EXALGO EXTENDED RELEASE [Suspect]
     Indication: BACK PAIN
  2. HYDROMORPHONE [Concomitant]
     Indication: BACK PAIN

REACTIONS (1)
  - Sinusitis [Unknown]
